FAERS Safety Report 20629216 (Version 2)
Quarter: 2022Q2

REPORT INFORMATION
  Report Type: Spontaneous
  Country: US (occurrence: US)
  Receive Date: 20220323
  Receipt Date: 20220429
  Transmission Date: 20220720
  Serious: Yes (Other)
  Sender: FDA-Public Use
  Company Number: US-PFIZER INC-202200419470

PATIENT
  Age: 51 Year
  Sex: Female

DRUGS (1)
  1. XELJANZ XR [Suspect]
     Active Substance: TOFACITINIB CITRATE
     Indication: Rheumatoid arthritis
     Dosage: 11 MG, 1X/DAY
     Route: 048
     Dates: start: 20220208

REACTIONS (8)
  - Lyme disease [Unknown]
  - Therapeutic product effect incomplete [Unknown]
  - Circumstance or information capable of leading to medication error [Unknown]
  - Pain in extremity [Unknown]
  - Joint swelling [Unknown]
  - Arthralgia [Unknown]
  - Discouragement [Unknown]
  - Depressed mood [Unknown]

NARRATIVE: CASE EVENT DATE: 20220101
